FAERS Safety Report 5699920-X (Version None)
Quarter: 2008Q2

REPORT INFORMATION
  Report Type: 
  Country: None (occurrence: None)
  Receive Date: 20080410
  Receipt Date: 20080403
  Transmission Date: 20081010
  Serious: Yes (Hospitalization, Disabling)
  Sender: FDA-Public Use
  Company Number: US-MERCK-0704USA05889

PATIENT
  Age: 71 Year
  Sex: Female

DRUGS (5)
  1. FOSAMAX [Suspect]
     Indication: OSTEOPENIA
     Route: 048
     Dates: start: 20010531
  2. FOSAMAX [Suspect]
     Route: 048
     Dates: start: 19971015
  3. FOSAMAX [Suspect]
     Route: 048
     Dates: start: 20020517
  4. FOSAMAX [Suspect]
     Route: 048
     Dates: start: 19981001, end: 20010530
  5. LEVOXYL [Concomitant]
     Route: 065

REACTIONS (17)
  - ARTHRALGIA [None]
  - BLOOD CHOLESTEROL INCREASED [None]
  - CARDIAC DISORDER [None]
  - CARPAL TUNNEL SYNDROME [None]
  - CATARACT [None]
  - DENTAL CARIES [None]
  - FALL [None]
  - HYPERCHOLESTEROLAEMIA [None]
  - HYPOACUSIS [None]
  - JAW FRACTURE [None]
  - LUMBAR SPINAL STENOSIS [None]
  - NO THERAPEUTIC RESPONSE [None]
  - OSTEONECROSIS [None]
  - REFLUX OESOPHAGITIS [None]
  - RESORPTION BONE INCREASED [None]
  - SQUAMOUS CELL CARCINOMA [None]
  - TOOTH INFECTION [None]
